FAERS Safety Report 9103565 (Version 1)
Quarter: 2013Q1

REPORT INFORMATION
  Report Type: Spontaneous
  Country: JP (occurrence: JP)
  Receive Date: 20130218
  Receipt Date: 20130218
  Transmission Date: 20140127
  Serious: Yes (Other)
  Sender: FDA-Public Use
  Company Number: JP-GLAXOSMITHKLINE-B0862530A

PATIENT
  Sex: Female

DRUGS (10)
  1. FLUTIDE [Suspect]
     Indication: ASTHMA
     Dosage: 100MCG TWICE PER DAY
     Route: 055
     Dates: start: 201010, end: 201210
  2. FLUTIDE [Suspect]
     Indication: ASTHMA
     Route: 055
     Dates: start: 201210
  3. FLUTIDE [Suspect]
     Indication: ASTHMA
     Dosage: 50MCG TWICE PER DAY
     Route: 055
     Dates: start: 201007, end: 201010
  4. PULMICORT [Concomitant]
     Indication: ASTHMA
     Route: 055
     Dates: start: 200610, end: 201007
  5. ONON [Concomitant]
     Indication: ASTHMA
     Route: 048
     Dates: start: 200608, end: 201204
  6. ZADITEN [Concomitant]
     Indication: ATOPY
     Route: 048
     Dates: start: 200505, end: 2011
  7. THEODUR [Concomitant]
     Indication: ASTHMA
     Dosage: .125G TWICE PER DAY
     Route: 048
     Dates: start: 200809
  8. SINGULAIR [Concomitant]
     Indication: ASTHMA
     Dosage: 5MG PER DAY
     Route: 048
     Dates: start: 201204
  9. HOKUNALIN [Concomitant]
     Indication: ASTHMA
     Route: 062
  10. EBASTEL [Concomitant]
     Indication: ATOPY
     Route: 048

REACTIONS (2)
  - Growth retardation [Unknown]
  - Body height below normal [Unknown]
